FAERS Safety Report 21438511 (Version 1)
Quarter: 2022Q4

REPORT INFORMATION
  Report Type: Spontaneous
  Country: FR (occurrence: FR)
  Receive Date: 20221011
  Receipt Date: 20221011
  Transmission Date: 20230112
  Serious: Yes (Hospitalization, Other)
  Sender: FDA-Public Use
  Company Number: FR-AFSSAPS-ST20222169

PATIENT
  Age: 51 Year
  Sex: Male
  Weight: 83.5 kg

DRUGS (6)
  1. DIAZEPAM [Interacting]
     Active Substance: DIAZEPAM
     Indication: Psychotic disorder
     Dosage: 40 MILLIGRAM, ONCE A DAY,(2 CP DE 10MG, SOIT 20MG, ? 8H. 1 CP DE 10MG ? 12H. 1 CP DE 10MG ? 18H)
     Route: 048
  2. OLANZAPINE [Interacting]
     Active Substance: OLANZAPINE
     Indication: Product used for unknown indication
     Dosage: 10 MILLIGRAM, ONCE A DAY,(1 CP DE 10MG ? 18H.)
     Route: 048
  3. TROPATEPINE HYDROCHLORIDE [Interacting]
     Active Substance: TROPATEPINE HYDROCHLORIDE
     Indication: Product used for unknown indication
     Dosage: 20 MILLIGRAM, ONCE A DAY,(1 CP DE 10MG ? 8H ET ? 18H.)
     Route: 048
  4. LOXAPINE [Interacting]
     Active Substance: LOXAPINE
     Indication: Psychotic disorder
     Dosage: 25 MILLIGRAM, ONCE A DAY,(25MG, SOIT 25 GOUTTES, PAR JOUR. +25MG SB. +30MG AU COUCHER SB.)
     Route: 048
  5. CYAMEMAZINE [Interacting]
     Active Substance: CYAMEMAZINE
     Indication: Psychotic disorder
     Dosage: 360 MILLIGRAM, ONCE A DAY,(120MG LE MIDI. 120MG LE SOIR. + 50MG SB.)
     Route: 048
  6. TRIMEPRAZINE [Interacting]
     Active Substance: TRIMEPRAZINE
     Indication: Product used for unknown indication
     Dosage: 20 MILLIGRAM, ONCE A DAY,(20MG, SOIT 4CP, ? 22H.)
     Route: 048

REACTIONS (3)
  - Altered state of consciousness [Recovered/Resolved]
  - Dyspnoea [Recovered/Resolved]
  - Somnolence [Recovered/Resolved]

NARRATIVE: CASE EVENT DATE: 20220904
